FAERS Safety Report 6386712-1 (Version None)
Quarter: 2009Q4

REPORT INFORMATION
  Report Type: 
  Country: None (occurrence: None)
  Receive Date: 20091002
  Receipt Date: 20090924
  Transmission Date: 20100525
  Serious: Yes (Life-Threatening, Hospitalization)
  Sender: FDA-Public Use
  Company Number: GB-TEVA-210692ISR

PATIENT
  Age: 7 Year
  Sex: Female

DRUGS (1)
  1. IBUPROFEN [Suspect]
     Indication: BODY TEMPERATURE INCREASED

REACTIONS (1)
  - HYPOTHERMIA [None]
